FAERS Safety Report 6998062-0 (Version None)
Quarter: 2010Q3

REPORT INFORMATION
  Report Type: 
  Country: None (occurrence: None)
  Receive Date: 20100920
  Receipt Date: 20100505
  Transmission Date: 20110219
  Serious: Yes (Other)
  Sender: FDA-Public Use
  Company Number: US-ASTRAZENECA-2010SE16911

PATIENT
  Age: 11514 Day
  Sex: Female

DRUGS (17)
  1. SEROQUEL XR [Suspect]
     Indication: SCHIZOAFFECTIVE DISORDER
     Route: 048
     Dates: start: 20100323
  2. SEROQUEL XR [Suspect]
     Indication: BIPOLAR DISORDER
     Route: 048
     Dates: start: 20100323
  3. SEROQUEL XR [Suspect]
     Indication: HALLUCINATION
     Route: 048
     Dates: start: 20100323
  4. SEROQUEL XR [Suspect]
     Route: 048
  5. SEROQUEL XR [Suspect]
     Route: 048
  6. SEROQUEL XR [Suspect]
     Route: 048
  7. SEROQUEL XR [Suspect]
     Route: 048
  8. SEROQUEL XR [Suspect]
     Route: 048
  9. SEROQUEL XR [Suspect]
     Route: 048
  10. SEROQUEL XR [Suspect]
     Route: 048
  11. SEROQUEL XR [Suspect]
     Route: 048
  12. SEROQUEL XR [Suspect]
     Route: 048
  13. HALDOL [Suspect]
     Indication: ANXIETY
     Route: 048
     Dates: start: 20091026
  14. TRAZODONE HCL [Concomitant]
     Dates: start: 20080101
  15. CLONAZEPAM [Concomitant]
     Route: 048
     Dates: start: 20080101
  16. BENZTROPINE MESYLATE [Concomitant]
     Dates: start: 20091026
  17. BENZTROPINE MESYLATE [Concomitant]

REACTIONS (1)
  - TARDIVE DYSKINESIA [None]
